FAERS Safety Report 10098313 (Version 2)
Quarter: 2014Q2

REPORT INFORMATION
  Report Type: Spontaneous
  Country: CL (occurrence: CL)
  Receive Date: 20140423
  Receipt Date: 20140423
  Transmission Date: 20141212
  Serious: Yes (Other)
  Sender: FDA-Public Use
  Company Number: PHHY2014CL038994

PATIENT
  Age: 26 Year
  Sex: Female

DRUGS (3)
  1. GILENYA [Suspect]
     Indication: MULTIPLE SCLEROSIS
     Dosage: 0.5 MG, QD
     Route: 048
     Dates: start: 20120223
  2. IMPLANON [Concomitant]
  3. ESCITALOPRAM [Concomitant]
     Indication: DEPRESSION
     Dosage: 30 MG, UNK

REACTIONS (2)
  - Cervical dysplasia [Unknown]
  - Papilloma viral infection [Recovering/Resolving]
